FAERS Safety Report 7329406-8 (Version None)
Quarter: 2011Q1

REPORT INFORMATION
  Report Type: 
  Country: None (occurrence: None)
  Receive Date: 20110228
  Receipt Date: 20110228
  Transmission Date: 20110831
  Serious: Yes (Hospitalization)
  Sender: FDA-Public Use
  Company Number: None

PATIENT
  Age: 61 Year
  Sex: Female
  Weight: 71.8498 kg

DRUGS (1)
  1. NELFINAVIR 3000MG PFIZER PHARMACEUTICALS [Suspect]
     Indication: LIPOSARCOMA
     Dosage: 3000MG BID PO
     Route: 048
     Dates: start: 20090611, end: 20090707

REACTIONS (2)
  - PSEUDOMONAS INFECTION [None]
  - DEVICE RELATED INFECTION [None]
